FAERS Safety Report 13465700 (Version 1)
Quarter: 2017Q2

REPORT INFORMATION
  Report Type: Spontaneous
  Country: GB (occurrence: GB)
  Receive Date: 20170421
  Receipt Date: 20170421
  Transmission Date: 20170830
  Serious: Yes (Life-Threatening, Hospitalization)
  Sender: FDA-Public Use
  Company Number: GB-ACCORD-050337

PATIENT
  Age: 76 Year
  Weight: 90 kg

DRUGS (14)
  1. ATORVASTATIN [Concomitant]
     Active Substance: ATORVASTATIN
     Dosage: AT NIGHT
     Route: 048
  2. OXYNORM [Concomitant]
     Active Substance: OXYCODONE HYDROCHLORIDE
     Dosage: STRENGTH: 5 MG/5 ML?AS NECCESSARY
     Route: 048
  3. FLUOXETINE [Concomitant]
     Active Substance: FLUOXETINE HYDROCHLORIDE
     Route: 048
  4. GABAPENTIN. [Concomitant]
     Active Substance: GABAPENTIN
     Dosage: MORNING, EVENING AND NIGHT
     Route: 048
  5. CALCICHEW D3 [Concomitant]
     Active Substance: CALCIUM\CHOLECALCIFEROL
     Dosage: AT 12 NOON AND 6 PM, TO BE SUCKED OR CHEWED.?POWDER FORM
     Route: 048
  6. LONGTEC [Concomitant]
     Active Substance: OXYCODONE HYDROCHLORIDE
     Route: 048
  7. ALENDRONATE SODIUM/ALENDRONIC ACID [Concomitant]
     Dosage: TAKEN 30 MINUTES BEFORE BREAKFAST
     Route: 048
  8. FUROSEMIDE. [Concomitant]
     Active Substance: FUROSEMIDE
     Dosage: EVERY MORNING
     Route: 048
  9. PARACETAMOL [Concomitant]
     Active Substance: ACETAMINOPHEN
     Indication: PAIN
     Dosage: FOUR TIMES A DAY, EACH DOSE MUST BE TAKEN 4 TO 6 HOURS APART.?AS NECESSARY.
     Route: 048
  10. COLECALCIFEROL [Concomitant]
     Active Substance: CHOLECALCIFEROL
     Route: 048
  11. DIGOXIN. [Concomitant]
     Active Substance: DIGOXIN
     Route: 048
  12. QUETIAPINE. [Suspect]
     Active Substance: QUETIAPINE
     Indication: HALLUCINATION
     Route: 048
     Dates: start: 20170315, end: 20170318
  13. VERAPAMIL [Concomitant]
     Active Substance: VERAPAMIL HYDROCHLORIDE
     Route: 048
  14. OMEPRAZOLE. [Concomitant]
     Active Substance: OMEPRAZOLE
     Route: 048

REACTIONS (3)
  - Cardiac arrest [Recovering/Resolving]
  - Ventricular fibrillation [Recovering/Resolving]
  - Electrocardiogram QT prolonged [Recovering/Resolving]

NARRATIVE: CASE EVENT DATE: 20170318
